FAERS Safety Report 8169262-1 (Version None)
Quarter: 2012Q1

REPORT INFORMATION
  Report Type: 
  Country: None (occurrence: None)
  Receive Date: 20120228
  Receipt Date: 20120216
  Transmission Date: 20120608
  Serious: Yes (Other)
  Sender: FDA-Public Use
  Company Number: US-ASTRAZENECA-2011SE50573

PATIENT
  Age: 58 Year
  Sex: Female

DRUGS (3)
  1. NEXIUM [Suspect]
     Route: 048
  2. NEXIUM [Suspect]
     Route: 048
  3. VIMOVO [Suspect]
     Route: 048

REACTIONS (16)
  - CEREBROVASCULAR ACCIDENT [None]
  - PAIN [None]
  - VOMITING [None]
  - ANXIETY [None]
  - FALL [None]
  - WEIGHT DECREASED [None]
  - BIPOLAR DISORDER [None]
  - PANIC ATTACK [None]
  - CONCUSSION [None]
  - REGURGITATION [None]
  - GASTROOESOPHAGEAL REFLUX DISEASE [None]
  - APHAGIA [None]
  - STOMATITIS [None]
  - DRUG DOSE OMISSION [None]
  - GASTRIC POLYPS [None]
  - MALAISE [None]
